FAERS Safety Report 23468061 (Version 1)
Quarter: 2024Q1

REPORT INFORMATION
  Report Type: Spontaneous
  Country: US (occurrence: US)
  Receive Date: 20240201
  Receipt Date: 20240201
  Transmission Date: 20240409
  Serious: No
  Sender: FDA-Public Use
  Company Number: US-PRINSTON PHARMACEUTICAL INC.-2023PRN00537

PATIENT
  Sex: Female

DRUGS (3)
  1. NEBIVOLOL [Suspect]
     Active Substance: NEBIVOLOL
     Dosage: 2.5 MG, 2X/DAY (MORNING AND NIGHT)
  2. NEBIVOLOL [Suspect]
     Active Substance: NEBIVOLOL
     Dosage: 5 MG, 1X/DAY IN THE MORNING
     Dates: start: 2023
  3. NEBIVOLOL [Suspect]
     Active Substance: NEBIVOLOL
     Dosage: 2.5 MG, 1X/DAY AT NIGHT
     Dates: start: 2023

REACTIONS (3)
  - Brain fog [Unknown]
  - Fatigue [Unknown]
  - Dizziness [Unknown]

NARRATIVE: CASE EVENT DATE: 20230101
